FAERS Safety Report 25986117 (Version 1)
Quarter: 2025Q4

REPORT INFORMATION
  Report Type: Spontaneous
  Country: EU (occurrence: EU)
  Receive Date: 20251101
  Receipt Date: 20251101
  Transmission Date: 20260118
  Serious: Yes (Other)
  Sender: TEVA
  Company Number: None

PATIENT
  Age: 63 Year
  Sex: Female

DRUGS (1)
  1. GABAPENTIN [Suspect]
     Active Substance: GABAPENTIN
     Indication: Cornelia de Lange syndrome
     Dosage: 2 AND A HALF CAPSULES EVERY DAY FOR 180 DAYS, GABAPENTIN TEVA, 90 CAPSULES
     Route: 065
     Dates: start: 202504

REACTIONS (3)
  - Depressed level of consciousness [Recovering/Resolving]
  - Hypertension [Recovering/Resolving]
  - Nausea [Recovering/Resolving]

NARRATIVE: CASE EVENT DATE: 20250401
